FAERS Safety Report 8608185 (Version 3)
Quarter: 2014Q1

REPORT INFORMATION
  Report Type: Spontaneous
  Country: US (occurrence: US)
  Receive Date: 20120611
  Receipt Date: 20140117
  Transmission Date: 20141002
  Serious: No
  Sender: FDA-Public Use
  Company Number: US-ASTRAZENECA-2012SE35559

PATIENT
  Age: 21356 Day
  Sex: Female
  Weight: 123.4 kg

DRUGS (10)
  1. NEXIUM [Suspect]
     Indication: GASTROOESOPHAGEAL REFLUX DISEASE
     Route: 048
     Dates: start: 20030701
  2. OMEPRAZOLE [Suspect]
     Route: 048
  3. PREVACID [Concomitant]
  4. ZANTAC [Concomitant]
  5. GAVISCONE [Concomitant]
  6. PEPTO BISMOL [Concomitant]
  7. ALKA SELTZER [Concomitant]
  8. MILK OF MAGNESIA [Concomitant]
  9. ROLAIDS [Concomitant]
  10. FLONASE [Concomitant]
     Route: 045
     Dates: start: 20050330

REACTIONS (7)
  - Osteoporosis [Unknown]
  - Multiple fractures [Unknown]
  - Spinal pain [Unknown]
  - Diabetes mellitus [Unknown]
  - Intervertebral disc degeneration [Unknown]
  - Arthropathy [Unknown]
  - Type 2 diabetes mellitus [Unknown]
